FAERS Safety Report 7335912-2 (Version None)
Quarter: 2011Q1

REPORT INFORMATION
  Report Type: 
  Country: None (occurrence: None)
  Receive Date: 20110307
  Receipt Date: 20110301
  Transmission Date: 20110831
  Serious: Yes (Hospitalization)
  Sender: FDA-Public Use
  Company Number: GB-GENENTECH-314548

PATIENT
  Age: 55 Year
  Sex: Male

DRUGS (3)
  1. ATORVASTATIN CALCIUM [Concomitant]
     Indication: PRODUCT USED FOR UNKNOWN INDICATION
     Dosage: UNK
     Dates: start: 20070304
  2. INOTUZUMAB OZOGAMICIN [Suspect]
     Indication: DIFFUSE LARGE B-CELL LYMPHOMA
     Dosage: 3.24 MG, 1/MONTH
     Route: 042
     Dates: start: 20061116, end: 20070202
  3. RITUXAN [Suspect]
     Indication: DIFFUSE LARGE B-CELL LYMPHOMA
     Dosage: 375 MG, 1/MONTH
     Route: 042
     Dates: start: 20061116, end: 20070202

REACTIONS (4)
  - BARRETT'S OESOPHAGUS [None]
  - DUODENAL ULCER [None]
  - DUODENITIS [None]
  - OESOPHAGITIS [None]
